FAERS Safety Report 17002616 (Version 2)
Quarter: 2019Q4

REPORT INFORMATION
  Report Type: Report from Study
  Country: None (occurrence: US)
  Receive Date: 20191107
  Receipt Date: 20191204
  Transmission Date: 20200122
  Serious: Yes (Other)
  Sender: FDA-Public Use
  Company Number: US-ABBVIE-19K-163-2691456-00

PATIENT
  Age: 69 Year
  Sex: Female

DRUGS (1)
  1. HUMIRA [Suspect]
     Active Substance: ADALIMUMAB
     Indication: CROHN^S DISEASE
     Route: 058

REACTIONS (15)
  - Corneal transplant [Unknown]
  - Gastrointestinal ulcer [Unknown]
  - Back pain [Unknown]
  - Cataract [Unknown]
  - Peripheral swelling [Unknown]
  - Sciatica [Not Recovered/Not Resolved]
  - Vision blurred [Unknown]
  - Poor peripheral circulation [Unknown]
  - Pain in extremity [Unknown]
  - Diarrhoea [Not Recovered/Not Resolved]
  - Muscle spasms [Not Recovered/Not Resolved]
  - Arthralgia [Unknown]
  - Gastrointestinal ulcer [Unknown]
  - Venous operation [Unknown]
  - Corneal transplant [Unknown]

NARRATIVE: CASE EVENT DATE: 201612
